FAERS Safety Report 15074349 (Version 4)
Quarter: 2019Q4

REPORT INFORMATION
  Report Type: Report from Study
  Country: DE (occurrence: DE)
  Receive Date: 20180627
  Receipt Date: 20191203
  Transmission Date: 20200122
  Serious: Yes (Hospitalization, Other)
  Sender: FDA-Public Use
  Company Number: DE-TEVA-2018-DE-912043

PATIENT
  Age: 66 Year
  Sex: Male
  Weight: 85 kg

DRUGS (133)
  1. DOXORUBICIN [Interacting]
     Active Substance: DOXORUBICIN
     Dosage: 99 MG, (INFUSION RATE 8.3 ML/MIN FROM 09:35 TO 10:05)
     Route: 041
     Dates: start: 20180313, end: 20180313
  2. CYCLOPHOSPHAMIDE. [Interacting]
     Active Substance: CYCLOPHOSPHAMIDE
     Dosage: 1480 MG, UNK
     Route: 041
     Dates: start: 20180808, end: 20180808
  3. RITUXIMAB. [Suspect]
     Active Substance: RITUXIMAB
     Dosage: 600 MG, (INFUSION RATE 2.78 ML/MIN FROM 07:30 TO 10:30)
     Route: 041
     Dates: start: 20180312, end: 20180312
  4. KEVATRIL [Concomitant]
     Active Substance: GRANISETRON HYDROCHLORIDE
     Dates: start: 20180524, end: 20180524
  5. KEVATRIL [Concomitant]
     Active Substance: GRANISETRON HYDROCHLORIDE
     Dosage: 1 MG, UNK
     Route: 042
     Dates: start: 20180614, end: 20180614
  6. KEVATRIL [Concomitant]
     Active Substance: GRANISETRON HYDROCHLORIDE
     Dosage: 1 MG, UNK
     Route: 042
     Dates: start: 20180808, end: 20180808
  7. AMPHO MORONAL [Concomitant]
     Active Substance: AMPHOTERICIN B
     Dosage: UNK UNK, BID (2X1)
     Route: 048
     Dates: start: 20180522, end: 20180528
  8. MESNA. [Concomitant]
     Active Substance: MESNA
     Indication: PROPHYLAXIS
     Route: 042
     Dates: start: 20180313, end: 20180313
  9. PREDNISOLUT [Concomitant]
     Active Substance: PREDNISOLONE
     Route: 042
     Dates: start: 20180312, end: 20180312
  10. RANITIDIN [Concomitant]
     Active Substance: RANITIDINE HYDROCHLORIDE
     Indication: PROPHYLAXIS
     Dosage: UNK
     Route: 042
     Dates: start: 20180219, end: 20180219
  11. PREDNISONE. [Interacting]
     Active Substance: PREDNISONE
     Route: 048
     Dates: start: 20180221, end: 20180225
  12. VINCRISTINE [Interacting]
     Active Substance: VINCRISTINE
     Indication: DIFFUSE LARGE B-CELL LYMPHOMA
     Dosage: 2 MG, (INFUSION RATE 2 ML/MIN FROM 07:55 TO 08:00)
     Route: 041
     Dates: start: 20180404, end: 20180404
  13. VINCRISTINE [Interacting]
     Active Substance: VINCRISTINE
     Dosage: 2 MG, (INFUSION RATE 2 ML/MIN FROM 07:55 TO 08:00)
     Route: 041
     Dates: start: 20180704, end: 20180704
  14. CYCLOPHOSPHAMIDE. [Interacting]
     Active Substance: CYCLOPHOSPHAMIDE
     Dosage: 1480 MG, (INFUSION RATE 4.17 ML/MIN FROM 07:35 TO 09:35)
     Route: 041
     Dates: start: 20180313, end: 20180313
  15. CYCLOPHOSPHAMIDE. [Interacting]
     Active Substance: CYCLOPHOSPHAMIDE
     Dosage: 1480 MG, (INFUSION RATE 8.3 ML/MIN FROM 07:35 TO 09:35)
     Route: 042
     Dates: start: 20180404, end: 20180404
  16. CYCLOPHOSPHAMIDE. [Interacting]
     Active Substance: CYCLOPHOSPHAMIDE
     Dosage: 1480 MG, (INFUSION RATE 4.17 ML/MIN FROM 07:35 TO 09:35)
     Route: 042
     Dates: start: 20180503, end: 20180503
  17. CYCLOPHOSPHAMIDE. [Interacting]
     Active Substance: CYCLOPHOSPHAMIDE
     Route: 042
     Dates: start: 20180404, end: 20180404
  18. NEULASTA [Suspect]
     Active Substance: PEGFILGRASTIM
     Indication: LEUKOPENIA
     Dosage: 6 MG, UNK
     Route: 058
     Dates: start: 20180327, end: 20180327
  19. RANITIDIN [Concomitant]
     Active Substance: RANITIDINE HYDROCHLORIDE
     Dosage: 2 MG, UNK
     Route: 042
     Dates: start: 20180807, end: 20180807
  20. AMPHO MORONAL [Concomitant]
     Active Substance: AMPHOTERICIN B
     Dosage: UNK UNK, BID (2X1)
     Route: 048
     Dates: start: 20180612, end: 20180618
  21. MESNA. [Concomitant]
     Active Substance: MESNA
     Route: 042
     Dates: start: 20180503, end: 20180503
  22. MESNA. [Concomitant]
     Active Substance: MESNA
     Dosage: 1200 MG, UNK
     Route: 042
     Dates: start: 20180313, end: 20180313
  23. BISOPROLOL [Concomitant]
     Active Substance: BISOPROLOL
     Indication: HYPERTENSION
     Route: 048
     Dates: start: 20170830, end: 20180719
  24. PREDNISOLUT [Concomitant]
     Active Substance: PREDNISOLONE
     Route: 042
     Dates: start: 20180807, end: 20180807
  25. PREDNISOLUT [Concomitant]
     Active Substance: PREDNISOLONE
     Indication: PROPHYLAXIS
     Route: 042
     Dates: start: 20180219, end: 20180219
  26. SALBUTAMOL [Concomitant]
     Active Substance: ALBUTEROL
     Indication: ASTHMA
     Dosage: UNK, PRN
     Route: 048
     Dates: start: 201711
  27. PREDNISOLUT [Concomitant]
     Active Substance: PREDNISOLONE
     Route: 042
     Dates: start: 20180220, end: 20180220
  28. PARACETAMOL [Concomitant]
     Active Substance: ACETAMINOPHEN
     Route: 048
     Dates: start: 20180522, end: 20180522
  29. TAVEGIL [Concomitant]
     Active Substance: CLEMASTINE FUMARATE
     Route: 042
     Dates: start: 20180312, end: 20180312
  30. KEVATRIL [Concomitant]
     Active Substance: GRANISETRON HYDROCHLORIDE
     Route: 042
     Dates: start: 20180504, end: 20180504
  31. KEVATRIL [Concomitant]
     Active Substance: GRANISETRON HYDROCHLORIDE
     Route: 042
     Dates: start: 20180524, end: 20180524
  32. KEVATRIL [Concomitant]
     Active Substance: GRANISETRON HYDROCHLORIDE
     Route: 042
     Dates: start: 20180614, end: 20180614
  33. NEULASTA [Concomitant]
     Active Substance: PEGFILGRASTIM
     Dosage: 6 MG, UNK
     Route: 058
     Dates: start: 20180706, end: 20180706
  34. NEULASTA [Concomitant]
     Active Substance: PEGFILGRASTIM
     Dosage: 6 MG, UNK
     Route: 058
     Dates: start: 20180810, end: 20180810
  35. PREDNISONE. [Interacting]
     Active Substance: PREDNISONE
     Route: 048
     Dates: start: 20180523, end: 20180526
  36. VINCRISTINE [Interacting]
     Active Substance: VINCRISTINE
     Dosage: 2 MG, (INFUSION RATE 2 ML/MIN FROM 07:55 TO 08:00)
     Route: 041
     Dates: start: 20180523, end: 20180523
  37. DOXORUBICIN [Interacting]
     Active Substance: DOXORUBICIN
     Dosage: 99 MG, (INFUSION RATE 8.3 ML/MIN FROM 09:35 TO 10:05)
     Route: 041
     Dates: start: 20180503, end: 20180503
  38. DOXORUBICIN [Interacting]
     Active Substance: DOXORUBICIN
     Dosage: 99 MG, UNK
     Route: 041
     Dates: start: 20180808, end: 20180808
  39. DOXORUBICIN [Interacting]
     Active Substance: DOXORUBICIN
     Dosage: 99 MG, (INFUSION RATE 8.3 ML/MIN FROM 10:00 TO 10:30)
     Route: 041
     Dates: start: 20180704, end: 20180704
  40. RITUXIMAB. [Suspect]
     Active Substance: RITUXIMAB
     Route: 041
     Dates: start: 20180807, end: 20180807
  41. KEVATRIL [Concomitant]
     Active Substance: GRANISETRON HYDROCHLORIDE
     Route: 042
     Dates: start: 20180705, end: 20180705
  42. KEVATRIL [Concomitant]
     Active Substance: GRANISETRON HYDROCHLORIDE
     Dosage: 3 MG, UNK
     Route: 042
     Dates: start: 20180503, end: 20180503
  43. KEVATRIL [Concomitant]
     Active Substance: GRANISETRON HYDROCHLORIDE
     Dosage: 1 MG, UNK
     Route: 042
     Dates: start: 20180405, end: 20180405
  44. PREDNISOLUT [Concomitant]
     Active Substance: PREDNISOLONE
     Route: 042
     Dates: start: 20180502, end: 20180502
  45. PARACETAMOL [Concomitant]
     Active Substance: ACETAMINOPHEN
     Dosage: 1 G, UNK
     Route: 048
     Dates: start: 20180612, end: 20180612
  46. RANITIDIN [Concomitant]
     Active Substance: RANITIDINE HYDROCHLORIDE
     Route: 042
     Dates: start: 20180220, end: 20180220
  47. KEVATRIL [Concomitant]
     Active Substance: GRANISETRON HYDROCHLORIDE
     Dosage: 1 MG, UNK
     Route: 042
     Dates: start: 20180314, end: 20180314
  48. PARACETAMOL [Concomitant]
     Active Substance: ACETAMINOPHEN
     Dosage: 1 G, UNK
     Route: 042
     Dates: start: 20180807, end: 20180807
  49. KEVATRIL [Concomitant]
     Active Substance: GRANISETRON HYDROCHLORIDE
     Route: 042
     Dates: start: 20180503, end: 20180503
  50. RITUXIMAB. [Suspect]
     Active Substance: RITUXIMAB
     Dosage: 740 MG, (INFUSION RATE 4.2 ML/MIN FROM 08:00 TO 10:00)
     Route: 041
     Dates: start: 20180522, end: 20180522
  51. RITUXIMAB. [Suspect]
     Active Substance: RITUXIMAB
     Dosage: 740 MG, (INFUSION RATE 4.2 ML/MIN FROM 07:30 TO 09:30)
     Route: 041
     Dates: start: 20180612, end: 20180612
  52. RITUXIMAB. [Suspect]
     Active Substance: RITUXIMAB
     Route: 041
     Dates: start: 20180403, end: 20180403
  53. ALLOPURINOL. [Concomitant]
     Active Substance: ALLOPURINOL
     Indication: PROPHYLAXIS
     Route: 048
     Dates: start: 20180213, end: 20180311
  54. RANITIDIN [Concomitant]
     Active Substance: RANITIDINE HYDROCHLORIDE
     Route: 042
     Dates: start: 20180612, end: 20180612
  55. TAVEGIL [Concomitant]
     Active Substance: CLEMASTINE FUMARATE
     Indication: PROPHYLAXIS
     Dosage: 3 MG, UNK
     Route: 042
     Dates: start: 20180220, end: 20180220
  56. TAVEGIL [Concomitant]
     Active Substance: CLEMASTINE FUMARATE
     Dosage: 3 MG, UNK
     Route: 042
     Dates: start: 20180522, end: 20180522
  57. TAVEGIL [Concomitant]
     Active Substance: CLEMASTINE FUMARATE
     Dosage: 3 MG, UNK
     Route: 042
     Dates: start: 20180612, end: 20180612
  58. TAVEGIL [Concomitant]
     Active Substance: CLEMASTINE FUMARATE
     Route: 042
     Dates: start: 20180807, end: 20180807
  59. TAVEGIL [Concomitant]
     Active Substance: CLEMASTINE FUMARATE
     Dosage: 3 MG, UNK
     Route: 042
     Dates: start: 20180312, end: 20180312
  60. TAVEGIL [Concomitant]
     Active Substance: CLEMASTINE FUMARATE
     Dosage: 3 MG, UNK
     Route: 042
     Dates: start: 20180403, end: 20180403
  61. KEVATRIL [Concomitant]
     Active Substance: GRANISETRON HYDROCHLORIDE
     Dosage: 3 MG, UNK
     Route: 042
     Dates: start: 20180523, end: 20180523
  62. AMPHO MORONAL [Concomitant]
     Active Substance: AMPHOTERICIN B
     Dosage: UNK UNK, BID (2X1)
     Route: 048
     Dates: start: 20180807, end: 20180813
  63. MESNA. [Concomitant]
     Active Substance: MESNA
     Route: 042
     Dates: start: 20180808, end: 20180808
  64. MESNA. [Concomitant]
     Active Substance: MESNA
     Dosage: 1200 MG, UNK
     Route: 042
     Dates: start: 20180404, end: 20180404
  65. RANITIDIN [Concomitant]
     Active Substance: RANITIDINE HYDROCHLORIDE
     Route: 042
     Dates: start: 20180312, end: 20180312
  66. PARACETAMOL [Concomitant]
     Active Substance: ACETAMINOPHEN
     Indication: PROPHYLAXIS
     Dosage: 1 G, UNK
     Route: 048
     Dates: start: 20180312, end: 20180312
  67. PARACETAMOL [Concomitant]
     Active Substance: ACETAMINOPHEN
     Indication: PROPHYLAXIS
     Dosage: 1 G, UNK
     Route: 048
     Dates: start: 20180219, end: 20180219
  68. KEVATRIL [Concomitant]
     Active Substance: GRANISETRON HYDROCHLORIDE
     Route: 042
     Dates: start: 20180613, end: 20180613
  69. PREDNISONE. [Interacting]
     Active Substance: PREDNISONE
     Route: 048
     Dates: start: 20180313, end: 20180317
  70. PREDNISONE. [Interacting]
     Active Substance: PREDNISONE
     Route: 048
     Dates: start: 20180503, end: 20180506
  71. PREDNISONE. [Interacting]
     Active Substance: PREDNISONE
     Route: 048
     Dates: start: 20180613, end: 20180616
  72. PREDNISONE. [Interacting]
     Active Substance: PREDNISONE
     Dosage: 400 MG, UNK
     Route: 048
     Dates: start: 20180808, end: 20180811
  73. VINCRISTINE [Interacting]
     Active Substance: VINCRISTINE
     Dosage: 2 MG, (INFUSION RATE 2 ML/MIN FROM 07:30 TO 07:35)
     Route: 041
     Dates: start: 20180221, end: 20180221
  74. VINCRISTINE [Interacting]
     Active Substance: VINCRISTINE
     Dosage: 2 MG, (INFUSION RATE 2 ML/MIN FROM 07:30 TO 07:35)
     Route: 041
     Dates: start: 20180503, end: 20180503
  75. DOXORUBICIN [Interacting]
     Active Substance: DOXORUBICIN
     Dosage: 99 MG, (INFUSION RATE 8.4 ML/MIN FROM 10:00 TO 10:30)
     Route: 041
     Dates: start: 20180523, end: 20180523
  76. CYCLOPHOSPHAMIDE. [Interacting]
     Active Substance: CYCLOPHOSPHAMIDE
     Dosage: 1480 MG, (INFUSION RATE 4.2 ML/MIN FROM 08:00 TO 10:00)
     Route: 042
     Dates: start: 20180613, end: 20180613
  77. RITUXIMAB. [Suspect]
     Active Substance: RITUXIMAB
     Dosage: 740 MG, (INFUSION RATE 4.17 ML/MIN FROM 07:30 TO 09:30)
     Route: 041
     Dates: start: 20180502, end: 20180502
  78. RANITIDIN [Concomitant]
     Active Substance: RANITIDINE HYDROCHLORIDE
     Route: 042
     Dates: start: 20180403, end: 20180403
  79. KEVATRIL [Concomitant]
     Active Substance: GRANISETRON HYDROCHLORIDE
     Dosage: 3 MG, UNK
     Route: 042
     Dates: start: 20180221, end: 20180221
  80. KEVATRIL [Concomitant]
     Active Substance: GRANISETRON HYDROCHLORIDE
     Dosage: 3 MG, UNK
     Route: 042
     Dates: start: 20180704, end: 20180704
  81. AMPHO MORONAL [Concomitant]
     Active Substance: AMPHOTERICIN B
     Indication: PROPHYLAXIS
     Dosage: UNK UNK, BID (2X1)
     Route: 048
     Dates: start: 20180403, end: 20180409
  82. KEVATRIL [Concomitant]
     Active Substance: GRANISETRON HYDROCHLORIDE
     Route: 042
     Dates: start: 20180222, end: 20180222
  83. MESNA. [Concomitant]
     Active Substance: MESNA
     Route: 042
     Dates: start: 20180704, end: 20180704
  84. MESNA. [Concomitant]
     Active Substance: MESNA
     Indication: PROPHYLAXIS
     Route: 042
     Dates: start: 20180221, end: 20180221
  85. TAVEGIL [Concomitant]
     Active Substance: CLEMASTINE FUMARATE
     Indication: PROPHYLAXIS
     Route: 042
     Dates: start: 20180219, end: 20180219
  86. TAVEGIL [Concomitant]
     Active Substance: CLEMASTINE FUMARATE
     Route: 042
     Dates: start: 20180403, end: 20180403
  87. PARACETAMOL [Concomitant]
     Active Substance: ACETAMINOPHEN
     Indication: PROPHYLAXIS
     Dosage: 1 G, UNK
     Route: 048
     Dates: start: 20180220, end: 20180220
  88. NEULASTA [Concomitant]
     Active Substance: PEGFILGRASTIM
     Route: 058
     Dates: start: 20180525, end: 20180525
  89. SILAPO [Concomitant]
     Indication: PRODUCT USED FOR UNKNOWN INDICATION
     Dosage: 20.000 IE, QW
     Route: 058
     Dates: start: 20180503
  90. DOXORUBICIN [Interacting]
     Active Substance: DOXORUBICIN
     Indication: DIFFUSE LARGE B-CELL LYMPHOMA
     Route: 041
     Dates: start: 20180404, end: 20180404
  91. DOXORUBICIN [Interacting]
     Active Substance: DOXORUBICIN
     Dosage: 99 MG, (INFUSION RATE 8.3 ML/MIN FROM 10:35 TO 11:05)
     Route: 041
     Dates: start: 20180221, end: 20180221
  92. RITUXIMAB. [Suspect]
     Active Substance: RITUXIMAB
     Indication: DIFFUSE LARGE B-CELL LYMPHOMA
     Dosage: 740 MG, (INFUSION RATE 4.2 ML/MIN FROM 08:00 TO 10:00)
     Route: 041
     Dates: start: 20180703, end: 20180703
  93. RITUXIMAB. [Suspect]
     Active Substance: RITUXIMAB
     Dosage: 740 MG, (INFUSION RATE 1.7 ML/MIN FROM 07:30 TO 11:30)
     Route: 042
     Dates: start: 20180219, end: 20180219
  94. TAVEGIL [Concomitant]
     Active Substance: CLEMASTINE FUMARATE
     Dosage: 3 MG, UNK
     Route: 042
     Dates: start: 20180502, end: 20180502
  95. KEVATRIL [Concomitant]
     Active Substance: GRANISETRON HYDROCHLORIDE
     Indication: PROPHYLAXIS
     Route: 042
     Dates: start: 20180221, end: 20180221
  96. AMPHO MORONAL [Concomitant]
     Active Substance: AMPHOTERICIN B
     Dosage: UNK UNK, BID (2X1)
     Route: 048
     Dates: start: 20180502, end: 20180509
  97. AMPHO MORONAL [Concomitant]
     Active Substance: AMPHOTERICIN B
     Dosage: UNK UNK, BID (2X1)
     Route: 048
     Dates: start: 20180219, end: 20180226
  98. AMPHO MORONAL [Concomitant]
     Active Substance: AMPHOTERICIN B
     Dosage: UNK UNK, BID (2X1)
     Route: 042
     Dates: start: 20180403, end: 20180409
  99. MESNA. [Concomitant]
     Active Substance: MESNA
     Route: 042
     Dates: start: 20180221, end: 20180221
  100. PREDNISOLUT [Concomitant]
     Active Substance: PREDNISOLONE
     Dosage: 100 MG, UNK
     Route: 042
     Dates: start: 20180522, end: 20180522
  101. PANTOZOL [Concomitant]
     Active Substance: PANTOPRAZOLE SODIUM
     Indication: PROPHYLAXIS
     Route: 048
     Dates: start: 20180219
  102. COTRIM [Concomitant]
     Active Substance: SULFAMETHOXAZOLE\TRIMETHOPRIM
     Indication: PROPHYLAXIS
     Dosage: (3 DAYS WEEKLY)
     Route: 048
     Dates: start: 20180219
  103. PARACETAMOL [Concomitant]
     Active Substance: ACETAMINOPHEN
     Indication: PROPHYLAXIS
     Dosage: 1 G, UNK
     Route: 048
     Dates: start: 20180403, end: 20180403
  104. NEULASTA [Concomitant]
     Active Substance: PEGFILGRASTIM
     Route: 058
     Dates: start: 20180505, end: 20180505
  105. NEULASTA [Concomitant]
     Active Substance: PEGFILGRASTIM
     Dosage: 6 MG, UNK
     Route: 058
     Dates: start: 20180514, end: 20180514
  106. VINCRISTINE [Interacting]
     Active Substance: VINCRISTINE
     Route: 041
     Dates: start: 20180313, end: 20180313
  107. CYCLOPHOSPHAMIDE. [Interacting]
     Active Substance: CYCLOPHOSPHAMIDE
     Route: 042
     Dates: start: 20180523, end: 20180523
  108. TAVEGIL [Concomitant]
     Active Substance: CLEMASTINE FUMARATE
     Route: 042
     Dates: start: 20180703, end: 20180703
  109. KEVATRIL [Concomitant]
     Active Substance: GRANISETRON HYDROCHLORIDE
     Dosage: 3 MG, UNK
     Route: 042
     Dates: start: 20180404, end: 20180404
  110. MESNA. [Concomitant]
     Active Substance: MESNA
     Dosage: 1200 MG, UNK
     Route: 042
     Dates: start: 20180523, end: 20180523
  111. BISOPROLOL [Concomitant]
     Active Substance: BISOPROLOL
     Dosage: 5 UNK, UNK
     Route: 048
     Dates: start: 20180720
  112. PREDNISOLUT [Concomitant]
     Active Substance: PREDNISOLONE
     Dosage: 100 MG, UNK
     Route: 042
     Dates: start: 20180703, end: 20180703
  113. KEVATRIL [Concomitant]
     Active Substance: GRANISETRON HYDROCHLORIDE
     Route: 042
     Dates: start: 20180313, end: 20180313
  114. AMPHO MORONAL [Concomitant]
     Active Substance: AMPHOTERICIN B
     Indication: PROPHYLAXIS
     Route: 048
     Dates: start: 20180219, end: 20180226
  115. ACIC [Concomitant]
     Active Substance: ACYCLOVIR
     Indication: PROPHYLAXIS
     Dosage: 800 MG, UNK
     Route: 048
     Dates: start: 20180219
  116. NEULASTA [Concomitant]
     Active Substance: PEGFILGRASTIM
     Indication: PROPHYLAXIS
     Route: 058
     Dates: start: 20180615, end: 20180615
  117. PREDNISONE. [Suspect]
     Active Substance: PREDNISONE
     Indication: DIFFUSE LARGE B-CELL LYMPHOMA
     Route: 048
     Dates: start: 20180404, end: 20180407
  118. VINCRISTINE [Interacting]
     Active Substance: VINCRISTINE
     Dosage: 2 MG, (INFUSION RATE 2 ML/MIN FROM 07:55 TO 08:00)
     Route: 041
     Dates: start: 20180613, end: 20180613
  119. VINCRISTINE [Interacting]
     Active Substance: VINCRISTINE
     Dosage: 2 MG, UNK
     Route: 041
     Dates: start: 20180808, end: 20180808
  120. DOXORUBICIN [Interacting]
     Active Substance: DOXORUBICIN
     Dosage: 99 MG, (INFUSION RATE 8.3 ML/MIN FROM 10:00 TO 10:30)
     Route: 041
     Dates: start: 20180613, end: 20180613
  121. CYCLOPHOSPHAMIDE. [Interacting]
     Active Substance: CYCLOPHOSPHAMIDE
     Indication: DIFFUSE LARGE B-CELL LYMPHOMA
     Dosage: 1480 MG, (INFUSION RATE 8.1 ML/MIN FROM 07:35 TO 10:35)
     Route: 042
     Dates: start: 20180221, end: 20180221
  122. CYCLOPHOSPHAMIDE. [Interacting]
     Active Substance: CYCLOPHOSPHAMIDE
     Dosage: 1480 MG, (INFUSION RATE 4.2 ML/MIN FROM 08:00 TO 10:00)
     Route: 041
     Dates: start: 20180704, end: 20180704
  123. RANITIDIN [Concomitant]
     Active Substance: RANITIDINE HYDROCHLORIDE
     Route: 042
     Dates: start: 20180502, end: 20180502
  124. RANITIDIN [Concomitant]
     Active Substance: RANITIDINE HYDROCHLORIDE
     Route: 042
     Dates: start: 20180522, end: 20180522
  125. RANITIDIN [Concomitant]
     Active Substance: RANITIDINE HYDROCHLORIDE
     Dosage: UNK
     Route: 042
     Dates: start: 20180703, end: 20180703
  126. KEVATRIL [Concomitant]
     Active Substance: GRANISETRON HYDROCHLORIDE
     Dosage: 3 MG, UNK
     Route: 042
     Dates: start: 20180808, end: 20180808
  127. MESNA. [Concomitant]
     Active Substance: MESNA
     Route: 042
     Dates: start: 20180613, end: 20180613
  128. PREDNISOLUT [Concomitant]
     Active Substance: PREDNISOLONE
     Route: 042
     Dates: start: 20180612, end: 20180612
  129. PREDNISOLUT [Concomitant]
     Active Substance: PREDNISOLONE
     Dosage: 100 MG, UNK
     Route: 042
     Dates: start: 20180403, end: 20180403
  130. AMPHO MORONAL [Concomitant]
     Active Substance: AMPHOTERICIN B
     Route: 048
     Dates: start: 20180312, end: 20180318
  131. MESNA. [Concomitant]
     Active Substance: MESNA
     Route: 042
     Dates: start: 20180404, end: 20180404
  132. PARACETAMOL [Concomitant]
     Active Substance: ACETAMINOPHEN
     Dosage: 1 G, UNK
     Route: 048
     Dates: start: 20180502, end: 20180502
  133. KEVATRIL [Concomitant]
     Active Substance: GRANISETRON HYDROCHLORIDE
     Route: 042
     Dates: start: 20180523, end: 20180523

REACTIONS (25)
  - Off label use [Unknown]
  - Asthma [Recovered/Resolved]
  - Vitamin D decreased [Not Recovered/Not Resolved]
  - Neutropenia [Unknown]
  - C-reactive protein increased [Recovered/Resolved]
  - Drug interaction [Unknown]
  - Pulpitis dental [Recovered/Resolved]
  - Leukopenia [Recovered/Resolved]
  - Chest pain [Unknown]
  - Fibrin D dimer increased [Unknown]
  - Pyrexia [Unknown]
  - Nausea [Recovered/Resolved]
  - Pain [Recovered/Resolved]
  - Dizziness [Recovered/Resolved]
  - Anaemia [Not Recovered/Not Resolved]
  - Drug therapeutic incompatibility [Recovered/Resolved]
  - Product use in unapproved indication [Unknown]
  - C-reactive protein increased [Recovered/Resolved]
  - C-reactive protein increased [Recovered/Resolved]
  - Polyneuropathy [Not Recovered/Not Resolved]
  - Chills [Unknown]
  - Oedema peripheral [Recovered/Resolved]
  - Deep vein thrombosis [Recovered/Resolved]
  - Lymphoedema [Recovered/Resolved]
  - Neutropenic sepsis [Recovered/Resolved]

NARRATIVE: CASE EVENT DATE: 20180219
